FAERS Safety Report 12156324 (Version 3)
Quarter: 2017Q1

REPORT INFORMATION
  Report Type: Spontaneous
  Country: JP (occurrence: JP)
  Receive Date: 20160307
  Receipt Date: 20170307
  Transmission Date: 20170428
  Serious: Yes (Other)
  Sender: FDA-Public Use
  Company Number: JP-ELI_LILLY_AND_COMPANY-JP201603000823

PATIENT
  Age: 65 Year
  Sex: Male

DRUGS (5)
  1. 5-FU                               /00098801/ [Suspect]
     Active Substance: FLUOROURACIL
     Dosage: 1500 MG, CYCLICAL
     Route: 042
     Dates: start: 20160202
  2. ERBITUX [Suspect]
     Active Substance: CETUXIMAB
     Indication: LARYNGEAL CANCER RECURRENT
     Dosage: 250 MG/M2, WEEKLY (1/W)
     Route: 042
     Dates: start: 201511
  3. 5-FU                               /00098801/ [Suspect]
     Active Substance: FLUOROURACIL
     Indication: LARYNGEAL CANCER METASTATIC
     Dosage: 1000 MG/M2, UNKNOWN
     Route: 042
     Dates: start: 201511
  4. ERBITUX [Suspect]
     Active Substance: CETUXIMAB
     Dosage: 400 MG/M2, WEEKLY (1/W)
     Route: 042
     Dates: start: 20160202
  5. CARBOPLATIN. [Suspect]
     Active Substance: CARBOPLATIN
     Indication: LARYNGEAL CANCER RECURRENT
     Dosage: 300 MG, UNKNOWN
     Route: 042
     Dates: start: 201511

REACTIONS (3)
  - Hypomagnesaemia [Recovered/Resolved]
  - Platelet count decreased [Recovering/Resolving]
  - Petechiae [Recovered/Resolved]

NARRATIVE: CASE EVENT DATE: 20160223
